FAERS Safety Report 8531508-5 (Version None)
Quarter: 2012Q3

REPORT INFORMATION
  Report Type: 
  Country: None (occurrence: None)
  Receive Date: 20120723
  Receipt Date: 20120713
  Transmission Date: 20120928
  Serious: Yes (Hospitalization)
  Sender: FDA-Public Use
  Company Number: US-ASTRAZENECA-2012SE48992

PATIENT
  Age: 54 Year
  Sex: Male
  Weight: 108 kg

DRUGS (6)
  1. LIPITOR [Concomitant]
  2. ADVAIR DISKUS 100/50 [Concomitant]
     Indication: EMPHYSEMA
  3. VERAPAMIL [Concomitant]
  4. BRILINTA [Suspect]
     Indication: STENT PLACEMENT
     Route: 048
  5. PROTONIX [Concomitant]
  6. ADVAIR DISKUS 100/50 [Concomitant]
     Indication: ASTHMA

REACTIONS (3)
  - HAEMATOCRIT DECREASED [None]
  - HAEMOGLOBIN DECREASED [None]
  - DYSPNOEA [None]
